FAERS Safety Report 15967173 (Version 1)
Quarter: 2019Q1

REPORT INFORMATION
  Report Type: Spontaneous
  Country: US (occurrence: US)
  Receive Date: 20190215
  Receipt Date: 20190215
  Transmission Date: 20190418
  Serious: No
  Sender: FDA-Public Use
  Company Number: US-SA-2019SA040159

PATIENT

DRUGS (4)
  1. XELJANZ [Concomitant]
     Active Substance: TOFACITINIB CITRATE
     Dosage: 5 MG, BID
     Route: 048
  2. METHOTREXATE. [Suspect]
     Active Substance: METHOTREXATE
  3. HUMIRA [Suspect]
     Active Substance: ADALIMUMAB
  4. ARAVA [Suspect]
     Active Substance: LEFLUNOMIDE

REACTIONS (2)
  - Drug ineffective [Unknown]
  - Adverse event [Unknown]
